FAERS Safety Report 10290652 (Version 1)
Quarter: 2014Q3

REPORT INFORMATION
  Report Type: Spontaneous
  Country: GB (occurrence: None)
  Receive Date: 20140708
  Receipt Date: 20140708
  Transmission Date: 20150326
  Serious: Yes (Other)
  Sender: FDA-Public Use
  Company Number: AUR-APL-2014-07176

PATIENT
  Age: 14 Year
  Sex: Female

DRUGS (4)
  1. MICROLAX (SODIUM CITRATE, SODIUM LAURYL SULFOACETATE) [Concomitant]
  2. MOVICOL (MACROGOL, POTASSIUM CHLORIDE, SODIUM BICARBONATE) [Concomitant]
  3. SODIUM PICOSULFATE (SODIUM PICOSULFATE) [Concomitant]
  4. FLUOXETINE (FLUOXETINE) UNKNOWN [Suspect]
     Active Substance: FLUOXETINE HYDROCHLORIDE
     Indication: DEPRESSION
     Route: 048
     Dates: start: 20140529, end: 20140612

REACTIONS (2)
  - Emotional distress [None]
  - Infection [None]

NARRATIVE: CASE EVENT DATE: 20140531
